FAERS Safety Report 10633727 (Version 19)
Quarter: 2016Q2

REPORT INFORMATION
  Report Type: Report from Study
  Country: CA (occurrence: CA)
  Receive Date: 20141205
  Receipt Date: 20160530
  Transmission Date: 20160815
  Serious: Yes (Death, Hospitalization, Other)
  Sender: FDA-Public Use
  Company Number: PHHY2014CA156435

PATIENT
  Age: 77 Year
  Sex: Male
  Weight: 50 kg

DRUGS (10)
  1. QUESTRAN [Concomitant]
     Active Substance: CHOLESTYRAMINE
     Indication: PRODUCT USED FOR UNKNOWN INDICATION
     Route: 065
  2. PROPRANOLOL [Concomitant]
     Active Substance: PROPRANOLOL\PROPRANOLOL HYDROCHLORIDE
     Indication: PRODUCT USED FOR UNKNOWN INDICATION
     Dosage: 5 MG, TID
     Route: 048
  3. SANDOSTATIN LAR DEPOT [Suspect]
     Active Substance: OCTREOTIDE ACETATE
     Indication: PANCREATITIS
     Dosage: 20 MG, QMO
     Route: 030
     Dates: start: 20141031
  4. SANDOSTATIN LAR DEPOT [Suspect]
     Active Substance: OCTREOTIDE ACETATE
     Indication: FISTULA
     Dosage: 20 MG, TIW
     Route: 030
  5. SANDOSTATIN LAR DEPOT [Suspect]
     Active Substance: OCTREOTIDE ACETATE
     Dosage: 30 MG, QMO (EVERY 4 WEEKS)
     Route: 030
     Dates: end: 20160505
  6. LOPERAMIDE [Concomitant]
     Active Substance: LOPERAMIDE
     Indication: PRODUCT USED FOR UNKNOWN INDICATION
     Route: 065
  7. BENEPROTEIN [Concomitant]
     Active Substance: DIETARY SUPPLEMENT
     Indication: PRODUCT USED FOR UNKNOWN INDICATION
     Route: 065
  8. SANDOSTATIN LAR DEPOT [Suspect]
     Active Substance: OCTREOTIDE ACETATE
     Dosage: 30 MG, TIW
     Route: 030
  9. SANDOSTATIN [Suspect]
     Active Substance: OCTREOTIDE ACETATE
     Indication: FISTULA
     Dosage: 5 MG, TID
     Route: 048
  10. SANDOSTATIN [Suspect]
     Active Substance: OCTREOTIDE ACETATE
     Indication: PANCREATITIS
     Dosage: 100 UG, Q8H
     Route: 058
     Dates: start: 20140925

REACTIONS (18)
  - Enzyme level increased [Unknown]
  - Blood pressure diastolic decreased [Unknown]
  - Gastric fistula [Unknown]
  - Pseudocyst [Unknown]
  - Asthenia [Unknown]
  - Death [Fatal]
  - Confusional state [Unknown]
  - Injection site pain [Unknown]
  - Inappropriate schedule of drug administration [Unknown]
  - Herpes zoster [Unknown]
  - Hip fracture [Unknown]
  - Product use issue [Unknown]
  - Gastrointestinal bacterial infection [Unknown]
  - Pancreatic disorder [Unknown]
  - Weight decreased [Unknown]
  - Heart rate decreased [Unknown]
  - Fall [Unknown]
  - Restlessness [Unknown]

NARRATIVE: CASE EVENT DATE: 2014
